FAERS Safety Report 17566679 (Version 2)
Quarter: 2020Q2

REPORT INFORMATION
  Report Type: Spontaneous
  Country: JP (occurrence: JP)
  Receive Date: 20200320
  Receipt Date: 20200603
  Transmission Date: 20200713
  Serious: Yes (Life-Threatening, Hospitalization, Other)
  Sender: FDA-Public Use
  Company Number: JP-PFIZER INC-2020117725

PATIENT
  Age: 81 Year
  Sex: Male
  Weight: 65 kg

DRUGS (9)
  1. PIMENOL 50MG [Suspect]
     Active Substance: PIRMENOL HYDROCHLORIDE
     Indication: SINUS NODE DYSFUNCTION
     Dosage: 100 MG, 2X/DAY
     Route: 048
     Dates: start: 201104, end: 20191004
  2. AMLODIPINE [AMLODIPINE BESILATE] [Concomitant]
     Active Substance: AMLODIPINE BESYLATE
     Dosage: UNK
  3. TRANEXAMIC ACID. [Concomitant]
     Active Substance: TRANEXAMIC ACID
     Dosage: UNK
  4. HARVONI [Concomitant]
     Active Substance: LEDIPASVIR\SOFOSBUVIR
     Dosage: UNK
  5. LEVOFLOXACIN MEIJI [Suspect]
     Active Substance: LEVOFLOXACIN
     Indication: URINARY TRACT INFECTION
     Dosage: 500 MG, 1X/DAY
     Route: 048
     Dates: start: 20191004, end: 20191005
  6. CARBAZOCHROME SULFONATE NA [Concomitant]
     Dosage: UNK
  7. NICHIPHAGEN [Concomitant]
     Active Substance: AMMONIUM GLYCYRRHIZATE\CYSTEINE HYDROCHLORIDE\GLYCINE
     Dosage: UNK
  8. IRBESARTAN NIPRO [Concomitant]
     Dosage: UNK
  9. URSO [Concomitant]
     Active Substance: URSODIOL
     Dosage: UNK

REACTIONS (6)
  - Atrial fibrillation [Recovering/Resolving]
  - Ventricular tachycardia [Recovering/Resolving]
  - Torsade de pointes [Recovering/Resolving]
  - Cardio-respiratory arrest [Recovering/Resolving]
  - Pyrexia [Recovering/Resolving]
  - Electrocardiogram QT prolonged [Recovering/Resolving]

NARRATIVE: CASE EVENT DATE: 20191004
